FAERS Safety Report 13597819 (Version 3)
Quarter: 2018Q1

REPORT INFORMATION
  Report Type: Spontaneous
  Country: JP (occurrence: JP)
  Receive Date: 20170531
  Receipt Date: 20180116
  Transmission Date: 20180508
  Serious: Yes (Life-Threatening, Other)
  Sender: FDA-Public Use
  Company Number: JP-009507513-1705JPN002659J

PATIENT
  Age: 87 Year
  Sex: Male
  Weight: 50 kg

DRUGS (4)
  1. AVASTIN [Suspect]
     Active Substance: BEVACIZUMAB
     Indication: GLIOBLASTOMA MULTIFORME
     Dosage: 493 MG, UNK
     Route: 041
     Dates: start: 20170511, end: 20170511
  2. TEMODAL [Suspect]
     Active Substance: TEMOZOLOMIDE
     Indication: GLIOBLASTOMA MULTIFORME
     Dosage: 100 MG, UNK
     Route: 048
     Dates: start: 20170516, end: 20170523
  3. TEMODAL [Suspect]
     Active Substance: TEMOZOLOMIDE
     Dosage: 100 MG, UNK
     Route: 048
     Dates: start: 20170601, end: 20170705
  4. TEMODAL [Suspect]
     Active Substance: TEMOZOLOMIDE
     Indication: GLIOBLASTOMA MULTIFORME
     Dosage: 100 MG, UNK
     Route: 041
     Dates: start: 20170511, end: 20170515

REACTIONS (2)
  - Duodenal ulcer perforation [Recovered/Resolved]
  - Peritonitis [Recovered/Resolved]

NARRATIVE: CASE EVENT DATE: 20170524
